FAERS Safety Report 17064892 (Version 3)
Quarter: 2020Q1

REPORT INFORMATION
  Report Type: Spontaneous
  Country: JP (occurrence: JP)
  Receive Date: 20191122
  Receipt Date: 20200214
  Transmission Date: 20200409
  Serious: Yes (Other)
  Sender: FDA-Public Use
  Company Number: JP-SAKK-2019SA322306AA

PATIENT
  Age: 32 Year
  Sex: Male

DRUGS (2)
  1. DELLEGRA COMBINATION TABLETS [Suspect]
     Active Substance: FEXOFENADINE HYDROCHLORIDE\PSEUDOEPHEDRINE HYDROCHLORIDE
     Indication: RHINITIS ALLERGIC
     Dosage: 2 DF, TWICE A DAY, QOW
     Route: 048
     Dates: start: 20190830, end: 20190913
  2. ALLERMIST [Concomitant]
     Active Substance: FLUTICASONE FUROATE
     Indication: NASAL CONGESTION
     Dosage: 2 SPRAYS/DAY, Q4W
     Route: 065
     Dates: start: 20190830, end: 20191024

REACTIONS (5)
  - Skin erosion [Unknown]
  - Skin exfoliation [Recovered/Resolved]
  - Erythema [Recovered/Resolved]
  - Stevens-Johnson syndrome [Unknown]
  - Pain in extremity [Recovered/Resolved]

NARRATIVE: CASE EVENT DATE: 201908
